FAERS Safety Report 9834227 (Version 1)
Quarter: 2014Q1

REPORT INFORMATION
  Report Type: Spontaneous
  Country: US (occurrence: US)
  Receive Date: 20140122
  Receipt Date: 20140122
  Transmission Date: 20141002
  Serious: No
  Sender: FDA-Public Use
  Company Number: US-ENDO PHARMACEUTICALS INC.-HCDA20130143

PATIENT
  Age: 56 Year
  Sex: Female

DRUGS (2)
  1. HYDROCODONE BITARTRATE / ACETAMINOPHEN 10MG/325MG [Suspect]
     Indication: PAIN
     Dosage: 40/1300 MG
     Route: 048
     Dates: start: 20131023
  2. CARISOPRODOL TABLETS 350MG [Suspect]
     Indication: PAIN
     Route: 048
     Dates: start: 20131023

REACTIONS (3)
  - Pruritus [Not Recovered/Not Resolved]
  - Vomiting [Not Recovered/Not Resolved]
  - Drug ineffective [Not Recovered/Not Resolved]
